FAERS Safety Report 4375367-3 (Version None)
Quarter: 2004Q2

REPORT INFORMATION
  Report Type: 
  Country: None (occurrence: None)
  Receive Date: 20040607
  Receipt Date: 20030902
  Transmission Date: 20050107
  Serious: Yes (Other)
  Sender: FDA-Public Use
  Company Number: 346045

PATIENT
  Age: 16 Year
  Sex: Female
  Weight: 59 kg

DRUGS (2)
  1. ACCUTANE [Suspect]
     Indication: ACNE
     Dosage: 40 MG DAILY ORAL
     Route: 048
     Dates: start: 20020807, end: 20020930
  2. ORTHO TRI-CYCLEN [Concomitant]

REACTIONS (3)
  - DEPRESSION [None]
  - HALLUCINATION [None]
  - PSYCHOTIC DISORDER [None]
